FAERS Safety Report 5462526-1 (Version None)
Quarter: 2007Q3

REPORT INFORMATION
  Report Type: 
  Country: None (occurrence: None)
  Receive Date: 20070920
  Receipt Date: 20070126
  Transmission Date: 20080115
  Serious: No
  Sender: FDA-Public Use
  Company Number: A0636987A

PATIENT
  Age: 54 Year
  Sex: Female

DRUGS (5)
  1. ABREVA [Suspect]
     Dates: start: 20070119
  2. AVEENO [Concomitant]
  3. LIP BALM [Concomitant]
  4. LYSINE [Concomitant]
  5. ACIDOPHILUS [Concomitant]

REACTIONS (3)
  - APPLICATION SITE ERYTHEMA [None]
  - APPLICATION SITE IRRITATION [None]
  - ORAL HERPES [None]
